FAERS Safety Report 16794321 (Version 1)
Quarter: 2019Q3

REPORT INFORMATION
  Report Type: Spontaneous
  Country: US (occurrence: US)
  Receive Date: 20190719
  Receipt Date: 20190719
  Transmission Date: 20191005
  Serious: Yes (Death, Hospitalization)
  Sender: FDA-Public Use
  Company Number: None

PATIENT
  Age: 69 Year
  Sex: Male
  Weight: 65.8 kg

DRUGS (3)
  1. ELOXATIN [Suspect]
     Active Substance: OXALIPLATIN
     Dates: end: 20190624
  2. LEUCOVORIN CALICUM [Suspect]
     Active Substance: LEUCOVORIN CALCIUM
     Dates: end: 20190624
  3. 5-FLUOROURACIL (5-FU) [Suspect]
     Active Substance: FLUOROURACIL
     Dates: end: 20190626

REACTIONS (4)
  - Blood glucose increased [None]
  - Blood urea increased [None]
  - Sepsis [None]
  - Dehydration [None]

NARRATIVE: CASE EVENT DATE: 20190704
